FAERS Safety Report 10393338 (Version 1)
Quarter: 2014Q3

REPORT INFORMATION
  Report Type: Spontaneous
  Country: FR (occurrence: FR)
  Receive Date: 20140819
  Receipt Date: 20140819
  Transmission Date: 20150326
  Serious: Yes (Other)
  Sender: FDA-Public Use
  Company Number: PHHY2014FR097288

PATIENT
  Age: 26 Year
  Sex: Female

DRUGS (2)
  1. BROMOCRIPTINE [Suspect]
     Active Substance: BROMOCRIPTINE
     Indication: SUPPRESSED LACTATION
     Dosage: 2.5 MG, BID
     Route: 048
  2. TRIMEBUTINE [Concomitant]
     Active Substance: TRIMEBUTINE
     Dosage: 100 MG, TID

REACTIONS (8)
  - Arrhythmia [Unknown]
  - Arteriospasm coronary [Unknown]
  - Troponin I increased [Unknown]
  - Blindness [Unknown]
  - Pericardial effusion [Unknown]
  - Myocardial infarction [Unknown]
  - Paresis [Unknown]
  - Electrocardiogram T wave inversion [Unknown]
